FAERS Safety Report 21146085 (Version 2)
Quarter: 2022Q3

REPORT INFORMATION
  Report Type: Spontaneous
  Country: DE (occurrence: DE)
  Receive Date: 20220729
  Receipt Date: 20220802
  Transmission Date: 20221027
  Serious: No
  Sender: FDA-Public Use
  Company Number: DE-SANOFI-01204051

PATIENT
  Age: 81 Year
  Sex: Female

DRUGS (1)
  1. DUPIXENT [Suspect]
     Active Substance: DUPILUMAB
     Dosage: UNK

REACTIONS (10)
  - Visual impairment [Unknown]
  - Vulvovaginal dryness [Unknown]
  - Breast enlargement [Unknown]
  - Weight increased [Unknown]
  - Gynaecomastia [Unknown]
  - Urinary incontinence [Unknown]
  - Anal incontinence [Unknown]
  - Condition aggravated [Unknown]
  - Dry eye [Unknown]
  - Conjunctivitis [Unknown]
